FAERS Safety Report 5740468-1 (Version None)
Quarter: 2008Q2

REPORT INFORMATION
  Report Type: 
  Country: None (occurrence: None)
  Receive Date: 20080516
  Receipt Date: 20080408
  Transmission Date: 20081010
  Serious: Yes (Life-Threatening, Hospitalization)
  Sender: FDA-Public Use
  Company Number: ES-ASTRAZENECA-2007AC02156

PATIENT
  Age: 25 Year
  Sex: Female

DRUGS (7)
  1. MERONEM [Interacting]
     Indication: PNEUMONIA
     Route: 042
     Dates: start: 20070901, end: 20070903
  2. VALPROIC ACID [Interacting]
     Indication: EPILEPSY
     Route: 042
     Dates: start: 20070825
  3. VALPROIC ACID [Interacting]
     Route: 042
  4. PHENYTOIN [Suspect]
  5. PHENYTOIN [Suspect]
     Dosage: GRADUALLY REDUCED
  6. PLAVIX [Concomitant]
     Indication: FACTOR V LEIDEN MUTATION
     Dates: start: 20060601
  7. DEPAKENE [Concomitant]
     Indication: PNEUMONIA
     Route: 048
     Dates: start: 20000101, end: 20070824

REACTIONS (3)
  - ANTICONVULSANT DRUG LEVEL DECREASED [None]
  - DRUG INTERACTION [None]
  - STATUS EPILEPTICUS [None]
